FAERS Safety Report 11301123 (Version 1)
Quarter: 2015Q3

REPORT INFORMATION
  Report Type: Spontaneous
  Country: US (occurrence: None)
  Receive Date: 20150722
  Receipt Date: 20150722
  Transmission Date: 20151125
  Serious: Yes (Hospitalization)
  Sender: FDA-Public Use
  Company Number: UCM201507-000484

PATIENT
  Age: 82 Year
  Sex: Female

DRUGS (5)
  1. VANCOMYCIN (VANCOMYCIN) (VANCOMYCIN) [Suspect]
     Active Substance: VANCOMYCIN
  2. METRONIDAZOLE (METRONIDAZOLE) (METRONIDAZOLE) [Suspect]
     Active Substance: METRONIDAZOLE
     Indication: COLITIS
  3. CIPROFLOXACIN (CIPROFLOXACIN) (CIPROFLOXACIN) [Suspect]
     Active Substance: CIPROFLOXACIN
     Indication: COLITIS
  4. IMIPENEM AND CILASTATIN [Concomitant]
     Active Substance: CILASTATIN SODIUM\IMIPENEM
  5. CEFEPIME [Suspect]
     Active Substance: CEFEPIME HYDROCHLORIDE

REACTIONS (5)
  - Infection [None]
  - Cholestasis [None]
  - Granuloma [None]
  - Drug-induced liver injury [None]
  - Sepsis [None]
